FAERS Safety Report 7561158-9 (Version None)
Quarter: 2011Q2

REPORT INFORMATION
  Report Type: 
  Country: None (occurrence: None)
  Receive Date: 20110621
  Receipt Date: 20100708
  Transmission Date: 20111010
  Serious: No
  Sender: FDA-Public Use
  Company Number: US-ASTRAZENECA-2010SE31815

PATIENT
  Sex: Male

DRUGS (1)
  1. PULMICORT [Suspect]
     Route: 055

REACTIONS (2)
  - GASTRIC DISORDER [None]
  - DIZZINESS [None]
